FAERS Safety Report 13372084 (Version 3)
Quarter: 2017Q2

REPORT INFORMATION
  Report Type: Spontaneous
  Country: BE (occurrence: BE)
  Receive Date: 20170327
  Receipt Date: 20170502
  Transmission Date: 20170830
  Serious: Yes (Other)
  Sender: FDA-Public Use
  Company Number: BE-ROCHE-1910501

PATIENT
  Age: 72 Year
  Sex: Female

DRUGS (1)
  1. LUCENTIS [Suspect]
     Active Substance: RANIBIZUMAB
     Indication: AGE-RELATED MACULAR DEGENERATION
     Dosage: (IN LEFT EYE)
     Route: 031
     Dates: start: 20170126, end: 20170306

REACTIONS (4)
  - Eye pain [Unknown]
  - Blindness [Unknown]
  - Necrotising retinitis [Recovered/Resolved with Sequelae]
  - Anophthalmos [Recovered/Resolved with Sequelae]

NARRATIVE: CASE EVENT DATE: 20170310
